FAERS Safety Report 8504878-1 (Version None)
Quarter: 2012Q3

REPORT INFORMATION
  Report Type: 
  Country: None (occurrence: None)
  Receive Date: 20120712
  Receipt Date: 20120703
  Transmission Date: 20120928
  Serious: Yes (Other)
  Sender: FDA-Public Use
  Company Number: US-BAYER-2012-068968

PATIENT
  Sex: Female

DRUGS (4)
  1. ASPIRIN [Suspect]
  2. XARELTO [Interacting]
     Indication: CEREBROVASCULAR ACCIDENT PROPHYLAXIS
     Dosage: 15 MG, QD
     Route: 048
     Dates: start: 20120101, end: 20120101
  3. XARELTO [Interacting]
     Indication: ATRIAL FIBRILLATION
  4. ALL OTHER THERAPEUTIC PRODUCTS [Concomitant]
     Indication: PRODUCT USED FOR UNKNOWN INDICATION
     Dosage: UNK
     Dates: start: 20120101

REACTIONS (3)
  - GASTROINTESTINAL HAEMORRHAGE [None]
  - ULCER [None]
  - ADVERSE EVENT [None]
